FAERS Safety Report 6737867-8 (Version None)
Quarter: 2010Q2

REPORT INFORMATION
  Report Type: 
  Country: None (occurrence: None)
  Receive Date: 20100521
  Receipt Date: 20100521
  Transmission Date: 20101027
  Serious: Yes (Hospitalization)
  Sender: FDA-Public Use
  Company Number: None

PATIENT
  Sex: Male
  Weight: 77.4 kg

DRUGS (7)
  1. CARBOPLATIN [Suspect]
     Dosage: 580 MG
  2. TAXOL [Suspect]
     Dosage: 386 MG
  3. CARVEDILOL [Concomitant]
  4. LORAZEPAM [Concomitant]
  5. ONDANSETRON [Concomitant]
  6. COLCHICINE [Concomitant]
  7. HYDROCODONE [Concomitant]

REACTIONS (7)
  - ASTHENIA [None]
  - DEHYDRATION [None]
  - FALL [None]
  - FEBRILE NEUTROPENIA [None]
  - LUNG CONSOLIDATION [None]
  - METASTASES TO LUNG [None]
  - PULMONARY MASS [None]
